FAERS Safety Report 25104746 (Version 1)
Quarter: 2025Q1

REPORT INFORMATION
  Report Type: Spontaneous
  Country: US (occurrence: None)
  Receive Date: 20250320
  Receipt Date: 20250320
  Transmission Date: 20250409
  Serious: No
  Sender: FDA-CTU
  Company Number: None

PATIENT
  Age: 79 Year

DRUGS (1)
  1. XDEMVY [Suspect]
     Active Substance: LOTILANER
     Indication: Demodex blepharitis
     Dosage: 1 IN EACH EYE  BID OPHTHALMIC?
     Route: 047
     Dates: start: 20250210, end: 20250310

REACTIONS (3)
  - Eyelid pain [None]
  - Eye pain [None]
  - Urticaria [None]

NARRATIVE: CASE EVENT DATE: 20250310
